FAERS Safety Report 12497547 (Version 1)
Quarter: 2016Q2

REPORT INFORMATION
  Report Type: Spontaneous
  Country: VE (occurrence: VE)
  Receive Date: 20160625
  Receipt Date: 20160625
  Transmission Date: 20160815
  Serious: Yes (Hospitalization, Other)
  Sender: FDA-Public Use
  Company Number: PHHY2016VE085896

PATIENT
  Sex: Male

DRUGS (6)
  1. TEGRETOL [Suspect]
     Active Substance: CARBAMAZEPINE
     Indication: PSYCHOTIC DISORDER
  2. TEGRETOL [Suspect]
     Active Substance: CARBAMAZEPINE
     Indication: EPILEPSY
     Dosage: 1200 MG, QD
     Route: 048
  3. TEGRETOL [Suspect]
     Active Substance: CARBAMAZEPINE
     Indication: EPILEPSY
     Dosage: UNK UNK, QD
     Route: 048
  4. TEGRETOL [Suspect]
     Active Substance: CARBAMAZEPINE
     Indication: PSYCHOTIC DISORDER
  5. TEGRETOL [Suspect]
     Active Substance: CARBAMAZEPINE
     Indication: INTELLECTUAL DISABILITY
  6. TEGRETOL [Suspect]
     Active Substance: CARBAMAZEPINE
     Indication: INTELLECTUAL DISABILITY

REACTIONS (11)
  - Product use issue [Unknown]
  - Seizure [Not Recovered/Not Resolved]
  - Visual field defect [Unknown]
  - Unresponsive to stimuli [Not Recovered/Not Resolved]
  - Epileptic aura [Not Recovered/Not Resolved]
  - Nervous system disorder [Unknown]
  - Mood altered [Not Recovered/Not Resolved]
  - Loss of consciousness [Not Recovered/Not Resolved]
  - Epilepsy [Not Recovered/Not Resolved]
  - Respiratory arrest [Not Recovered/Not Resolved]
  - Dyskinesia [Not Recovered/Not Resolved]

NARRATIVE: CASE EVENT DATE: 20160419
